FAERS Safety Report 6449198-4 (Version None)
Quarter: 2009Q4

REPORT INFORMATION
  Report Type: 
  Country: None (occurrence: None)
  Receive Date: 20091120
  Receipt Date: 20091117
  Transmission Date: 20100525
  Serious: Yes (Death)
  Sender: FDA-Public Use
  Company Number: PHEH2009US13270

PATIENT
  Sex: Male
  Weight: 68.753 kg

DRUGS (18)
  1. AFINITOR [Suspect]
     Indication: RENAL CELL CARCINOMA
     Dosage: 10 MG, QD
     Route: 048
     Dates: start: 20090421
  2. HALOPERIDOL [Suspect]
     Indication: AGITATION
     Dosage: 1 TABLET EVERY 12 HOURS, PRN
  3. HALOPERIDOL [Suspect]
     Indication: ANXIETY
  4. AMLODIPINE BESYLATE [Concomitant]
     Dosage: 5 MG, BID
  5. GABAPENTIN [Concomitant]
     Dosage: 800 MG, QD
  6. ACETAMINOPHEN AND HYDROCODONE BITARTRATE [Concomitant]
     Indication: PAIN
     Dosage: 5/500 MG, Q4-6 HOURS, PRN
  7. STOOL SOFTENER [Concomitant]
     Dosage: UNK, PRN
  8. MEGESTROL ACETATE [Concomitant]
     Dosage: 4 TEASPOONS, Q3 DAYS
  9. ALBUTEROL SULFATE AND IPRATROPIUM BROMIDE [Concomitant]
     Dosage: 2 PUFFS, QID, PRN
     Dates: start: 20081219
  10. SENNA [Concomitant]
     Dosage: UNK, PRN
  11. OXYCONTIN [Concomitant]
     Dosage: 5 MG, PRN
  12. PROCHLORPERAZINE [Concomitant]
     Indication: NAUSEA
     Dosage: 10 MG, Q 4-6 HOURS, PRN
     Route: 048
     Dates: start: 20080512
  13. LORAZEPAM [Concomitant]
     Dosage: 1-2 TABLETS, EVERY 4 HOURS, PRN
     Dates: start: 20081219
  14. METHYLPHENIDATE HCL [Concomitant]
     Dosage: 5 MG, BID
     Dates: start: 20090219
  15. NAPROXEN SODIUM [Concomitant]
     Dosage: 325 MG, BID
     Dates: start: 20090326
  16. MINOCYCLINE HYDROCHLORIDE [Concomitant]
     Dosage: 100 MG, BID
     Dates: start: 20090526
  17. LASIX [Concomitant]
     Dosage: 20 MG, QD
     Route: 048
     Dates: start: 20090727
  18. DARBEPOETIN ALFA [Concomitant]
     Dosage: 500 UG, ONCE/SINGLE
     Route: 058
     Dates: start: 20090814

REACTIONS (16)
  - ANAEMIA [None]
  - ARTHRALGIA [None]
  - ASCITES [None]
  - BRONCHIAL HAEMORRHAGE [None]
  - CACHEXIA [None]
  - CONDITION AGGRAVATED [None]
  - CONSTIPATION [None]
  - DECREASED APPETITE [None]
  - DIARRHOEA [None]
  - FATIGUE [None]
  - MEMORY IMPAIRMENT [None]
  - METASTATIC RENAL CELL CARCINOMA [None]
  - MYALGIA [None]
  - OEDEMA PERIPHERAL [None]
  - SOMNOLENCE [None]
  - THROMBOSIS [None]
